FAERS Safety Report 8074635-1 (Version None)
Quarter: 2012Q1

REPORT INFORMATION
  Report Type: 
  Country: None (occurrence: None)
  Receive Date: 20120126
  Receipt Date: 20120120
  Transmission Date: 20120608
  Serious: Yes (Disabling, Other)
  Sender: FDA-Public Use
  Company Number: DE-PFIZER INC-2011057635

PATIENT
  Sex: Male

DRUGS (5)
  1. TRIMIPRAMINE [Concomitant]
     Indication: NEURALGIA
     Dosage: 25 MG, 1X/DAY
     Route: 064
     Dates: start: 20100111, end: 20110322
  2. LYRICA [Suspect]
     Dosage: 75 MG, 1X/DAY
     Route: 064
     Dates: start: 20110218, end: 20110220
  3. LYRICA [Suspect]
     Indication: NEURALGIA
     Dosage: 150 MG, 2X/DAY
     Route: 064
     Dates: start: 20110111, end: 20110325
  4. LYRICA [Suspect]
     Dosage: 150 MG, 1X/DAY
     Route: 064
     Dates: start: 20110215, end: 20110217
  5. FLUOXETINE HYDROCHLORIDE [Concomitant]
     Indication: NEURALGIA
     Dosage: 20 MG, 1X/DAY
     Route: 064
     Dates: start: 20100111, end: 20110322

REACTIONS (2)
  - MATERNAL EXPOSURE TIMING UNSPECIFIED [None]
  - DEAFNESS [None]
